FAERS Safety Report 16215947 (Version 1)
Quarter: 2019Q2

REPORT INFORMATION
  Report Type: Report from Study
  Country: IT (occurrence: IT)
  Receive Date: 20190419
  Receipt Date: 20190419
  Transmission Date: 20190711
  Serious: Yes (Hospitalization)
  Sender: FDA-Public Use
  Company Number: IT-TEVA-2019-IT-1037982

PATIENT
  Age: 51 Year
  Sex: Female

DRUGS (6)
  1. PLASIL [Suspect]
     Active Substance: METOCLOPRAMIDE HYDROCHLORIDE
     Indication: INTENTIONAL SELF-INJURY
     Route: 048
     Dates: start: 20190309, end: 20190309
  2. ATARAX [Suspect]
     Active Substance: HYDROXYZINE HYDROCHLORIDE
     Indication: INTENTIONAL SELF-INJURY
     Route: 048
     Dates: start: 20190309, end: 20190309
  3. CITALOPRAM [Suspect]
     Active Substance: CITALOPRAM HYDROBROMIDE
     Indication: INTENTIONAL SELF-INJURY
     Route: 048
     Dates: start: 20190309, end: 20190309
  4. OLANZAPINE. [Suspect]
     Active Substance: OLANZAPINE
     Indication: INTENTIONAL SELF-INJURY
     Route: 048
     Dates: start: 20190309, end: 20190309
  5. TRITTICO 300 MG COMPRESSE RIVESTITE CON FILM A RILASCIO PROLUNGATO C [Suspect]
     Active Substance: TRAZODONE HYDROCHLORIDE
     Indication: INTENTIONAL SELF-INJURY
     Route: 048
     Dates: start: 20190309, end: 20190309
  6. LORAZEPAM. [Suspect]
     Active Substance: LORAZEPAM
     Indication: INTENTIONAL SELF-INJURY
     Route: 048
     Dates: start: 20190309, end: 20190309

REACTIONS (6)
  - Dyspepsia [Recovering/Resolving]
  - Drug abuse [Recovering/Resolving]
  - Hypokinesia [Recovering/Resolving]
  - Intentional self-injury [Recovering/Resolving]
  - Depressed level of consciousness [Recovering/Resolving]
  - Sopor [Recovering/Resolving]

NARRATIVE: CASE EVENT DATE: 20190309
